FAERS Safety Report 19360982 (Version 1)
Quarter: 2021Q2

REPORT INFORMATION
  Report Type: Report from Study
  Country: None (occurrence: US)
  Receive Date: 20210602
  Receipt Date: 20210602
  Transmission Date: 20210717
  Serious: No
  Sender: FDA-Public Use
  Company Number: US-MDD US OPERATIONS-USW202001-000048

PATIENT
  Age: 72 Year
  Sex: Male

DRUGS (24)
  1. AMLODIPINE [Concomitant]
     Active Substance: AMLODIPINE BESYLATE
     Dosage: NOT PROVIDED
  2. FINASTERIDE. [Suspect]
     Active Substance: FINASTERIDE
     Indication: PRODUCT USED FOR UNKNOWN INDICATION
     Dosage: NOT PROVIDED
  3. COLACE [Suspect]
     Active Substance: DOCUSATE SODIUM
     Indication: PRODUCT USED FOR UNKNOWN INDICATION
     Dosage: NOT PROVIDED
  4. TADALAFIL. [Concomitant]
     Active Substance: TADALAFIL
     Dosage: NOT PROVIDED
  5. APOKYN [Suspect]
     Active Substance: APOMORPHINE HYDROCHLORIDE
     Route: 058
     Dates: start: 20200107, end: 20200301
  6. APOKYN [Suspect]
     Active Substance: APOMORPHINE HYDROCHLORIDE
     Route: 058
     Dates: start: 20200107
  7. RYTARY [Suspect]
     Active Substance: CARBIDOPA\LEVODOPA
     Indication: PRODUCT USED FOR UNKNOWN INDICATION
     Dosage: NOT PROVIDED
  8. ASA [Suspect]
     Active Substance: ASPIRIN
     Indication: PRODUCT USED FOR UNKNOWN INDICATION
     Dosage: NOT PROVIDED
  9. AMITIZA [Concomitant]
     Active Substance: LUBIPROSTONE
     Dosage: NOT PROVIDED
  10. ALPHA LIPOIC ACID [Concomitant]
     Active Substance: .ALPHA.-LIPOIC ACID
     Dosage: NOT PROVIDED
  11. AMIODARONE [Concomitant]
     Active Substance: AMIODARONE
     Dosage: NOT PROVIDED
  12. METHYLCELLULOSE [Concomitant]
     Active Substance: METHYLCELLULOSES
     Dosage: NOT PROVIDED
  13. SINEMET [Concomitant]
     Active Substance: CARBIDOPA\LEVODOPA
     Dosage: NOT PROVIDED
  14. MECLIZINE [Suspect]
     Active Substance: MECLIZINE HYDROCHLORIDE
     Indication: PRODUCT USED FOR UNKNOWN INDICATION
     Dosage: NOT PROVIDED
  15. AZITHROMYCIN ANHYDROUS. [Concomitant]
     Active Substance: AZITHROMYCIN ANHYDROUS
     Dosage: NOT PROVIDED
  16. HTZ [Concomitant]
     Active Substance: HYDROCHLOROTHIAZIDE
     Dosage: NOT PROVIDED
  17. PHAZYME [Concomitant]
     Active Substance: DIMETHICONE 410
     Dosage: NOT PROVIDED
  18. PANTOPRAZOLE [Suspect]
     Active Substance: PANTOPRAZOLE
     Indication: PRODUCT USED FOR UNKNOWN INDICATION
     Dosage: NOT PROVIDED
  19. MULTIVITAMIN [Concomitant]
     Active Substance: VITAMINS
     Dosage: NOT PROVIDED
  20. GOCCOVRI [Concomitant]
     Dosage: NOT PROVIDED
  21. APOKYN [Suspect]
     Active Substance: APOMORPHINE HYDROCHLORIDE
     Indication: PARKINSON^S DISEASE
     Dosage: TITRATION DOSE (MORE THAN 0.3 ML)
     Route: 058
     Dates: start: 20200107
  22. LOSARTAN. [Suspect]
     Active Substance: LOSARTAN
     Indication: PRODUCT USED FOR UNKNOWN INDICATION
     Dosage: NOT PROVIDED
  23. HOMOCYSTEINE. [Concomitant]
     Active Substance: HOMOCYSTEINE
     Dosage: NOT PROVIDED
  24. AZELASTINE HCL [Concomitant]
     Active Substance: AZELASTINE HYDROCHLORIDE
     Dosage: NOT PROVIDED

REACTIONS (11)
  - Lacrimation increased [Not Recovered/Not Resolved]
  - Condition aggravated [Recovered/Resolved]
  - Somnolence [Not Recovered/Not Resolved]
  - Diarrhoea [Recovered/Resolved]
  - Constipation [Not Recovered/Not Resolved]
  - Feeling abnormal [Not Recovered/Not Resolved]
  - Rhinorrhoea [Recovered/Resolved]
  - Vertigo [Recovered/Resolved]
  - Hypoaesthesia [Not Recovered/Not Resolved]
  - Nausea [Not Recovered/Not Resolved]
  - Aggression [Recovered/Resolved]

NARRATIVE: CASE EVENT DATE: 2020
